FAERS Safety Report 15185031 (Version 2)
Quarter: 2018Q3

REPORT INFORMATION
  Report Type: Spontaneous
  Country: US (occurrence: US)
  Receive Date: 20180723
  Receipt Date: 20180824
  Transmission Date: 20181010
  Serious: No
  Sender: FDA-Public Use
  Company Number: US-ASTRAZENECA-2018SE83101

PATIENT
  Sex: Female
  Weight: 85.3 kg

DRUGS (1)
  1. BYDUREON BCISE [Suspect]
     Active Substance: EXENATIDE
     Indication: TYPE 2 DIABETES MELLITUS
     Route: 058
     Dates: start: 20180624

REACTIONS (7)
  - Wrong technique in device usage process [Unknown]
  - Injection site mass [Unknown]
  - Pain [Unknown]
  - Abdominal pain [Unknown]
  - Incorrect dose administered [Unknown]
  - Injection site pain [Unknown]
  - Device malfunction [Unknown]
